FAERS Safety Report 17415343 (Version 1)
Quarter: 2020Q1

REPORT INFORMATION
  Report Type: Spontaneous
  Country: GB (occurrence: GB)
  Receive Date: 20200213
  Receipt Date: 20200213
  Transmission Date: 20200409
  Serious: Yes (Other)
  Sender: FDA-Public Use
  Company Number: GB-TEVA-2020-GB-1185206

PATIENT
  Age: 10 Year
  Sex: Female
  Weight: 33 kg

DRUGS (2)
  1. TRIMETHOPRIM. [Suspect]
     Active Substance: TRIMETHOPRIM
     Dosage: 200 MG
     Route: 065
  2. AMOXICILLIN. [Concomitant]
     Active Substance: AMOXICILLIN
     Dosage: 30 ML
     Dates: start: 20200123

REACTIONS (2)
  - Vomiting [Recovered/Resolved]
  - Headache [Recovered/Resolved]
